FAERS Safety Report 5986145-3 (Version None)
Quarter: 2008Q4

REPORT INFORMATION
  Report Type: 
  Country: None (occurrence: None)
  Receive Date: 20081205
  Receipt Date: 20081205
  Transmission Date: 20090506
  Serious: Yes (Disabling)
  Sender: FDA-Public Use
  Company Number: None

PATIENT
  Age: 45 Year
  Sex: Female
  Weight: 117.9352 kg

DRUGS (2)
  1. LEVAQUIN [Suspect]
     Indication: LOWER RESPIRATORY TRACT INFECTION
     Dosage: 750MG 1X DAILY PO
     Route: 048
  2. LEVAQUIN [Suspect]
     Dosage: 500MG 1X DAILY

REACTIONS (4)
  - ABASIA [None]
  - ARTHRALGIA [None]
  - JOINT SWELLING [None]
  - TENDON PAIN [None]
